FAERS Safety Report 23787601 (Version 2)
Quarter: 2024Q3

REPORT INFORMATION
  Report Type: Spontaneous
  Country: JP (occurrence: JP)
  Receive Date: 20240426
  Receipt Date: 20240912
  Transmission Date: 20241016
  Serious: Yes (Hospitalization)
  Sender: GLAXOSMITHKLINE
  Company Number: JP-GLAXOSMITHKLINE-JP2024JPN051468

PATIENT

DRUGS (1)
  1. LAMICTAL [Suspect]
     Active Substance: LAMOTRIGINE
     Indication: Bipolar disorder
     Dosage: 125 MG, BID(125 MG IN THE MORNING/ 125 MG IN THE EVENING)
     Dates: end: 20230424

REACTIONS (2)
  - Obsessive-compulsive symptom [Recovered/Resolved]
  - Condition aggravated [Recovered/Resolved]
